FAERS Safety Report 23543923 (Version 6)
Quarter: 2024Q2

REPORT INFORMATION
  Report Type: Report from Study
  Country: CA (occurrence: CA)
  Receive Date: 20240220
  Receipt Date: 20240619
  Transmission Date: 20240716
  Serious: Yes (Other)
  Sender: FDA-Public Use
  Company Number: CA-JNJFOC-20231250070

PATIENT
  Age: 28 Year
  Sex: Female
  Weight: 78 kg

DRUGS (7)
  1. SIMPONI [Suspect]
     Active Substance: GOLIMUMAB
     Indication: Rheumatoid arthritis
     Dosage: 12.50 MG/ML
     Route: 041
     Dates: start: 20231120
  2. SIMPONI [Suspect]
     Active Substance: GOLIMUMAB
     Route: 041
     Dates: start: 20231218
  3. SIMPONI [Suspect]
     Active Substance: GOLIMUMAB
     Route: 041
  4. SIMPONI [Suspect]
     Active Substance: GOLIMUMAB
     Route: 041
     Dates: start: 20240408
  5. SIMPONI [Suspect]
     Active Substance: GOLIMUMAB
     Route: 041
  6. CORTISONE [Concomitant]
     Active Substance: CORTISONE
  7. CORTISONE [Concomitant]
     Active Substance: CORTISONE
     Dates: start: 20240507

REACTIONS (9)
  - Abortion spontaneous [Recovering/Resolving]
  - Rheumatoid arthritis [Not Recovered/Not Resolved]
  - Exposure during pregnancy [Recovered/Resolved]
  - Lymphadenopathy [Not Recovered/Not Resolved]
  - Ageusia [Unknown]
  - COVID-19 [Recovered/Resolved]
  - Influenza [Unknown]
  - Therapeutic product ineffective [Unknown]
  - Off label use [Unknown]

NARRATIVE: CASE EVENT DATE: 20231201
